FAERS Safety Report 5761051-8 (Version None)
Quarter: 2008Q2

REPORT INFORMATION
  Report Type: 
  Country: None (occurrence: None)
  Receive Date: 20080606
  Receipt Date: 20080526
  Transmission Date: 20081010
  Serious: Yes (Other)
  Sender: FDA-Public Use
  Company Number: GB-WYE-H04359208

PATIENT
  Age: 95 Year
  Sex: Female

DRUGS (5)
  1. AMIODARONE HCL [Suspect]
     Indication: ATRIAL FIBRILLATION
     Route: 048
  2. AMIODARONE HCL [Suspect]
     Route: 048
  3. WARFARIN SODIUM [Concomitant]
     Indication: ATRIAL FIBRILLATION
  4. THYROXINE ^COX^ [Concomitant]
     Indication: HYPOTHYROIDISM
  5. BUMETANIDE [Concomitant]

REACTIONS (5)
  - ATAXIA [None]
  - CEREBELLAR SYNDROME [None]
  - HYPOTHYROIDISM [None]
  - NYSTAGMUS [None]
  - SENSORY DISTURBANCE [None]
